FAERS Safety Report 13775798 (Version 1)
Quarter: 2017Q3

REPORT INFORMATION
  Report Type: Spontaneous
  Country: US (occurrence: US)
  Receive Date: 20170720
  Receipt Date: 20170720
  Transmission Date: 20171127
  Serious: Yes (Other)
  Sender: FDA-Public Use
  Company Number: US-PFIZER INC-2017308230

PATIENT
  Age: 41 Year
  Sex: Male

DRUGS (3)
  1. XELJANZ XR [Suspect]
     Active Substance: TOFACITINIB CITRATE
     Indication: PAIN
     Dosage: 11 MG, UNK
  2. XELJANZ XR [Suspect]
     Active Substance: TOFACITINIB CITRATE
     Indication: SWELLING
  3. CELLCEPT [Concomitant]
     Active Substance: MYCOPHENOLATE MOFETIL\MYCOPHENOLATE MOFETIL HYDROCHLORIDE

REACTIONS (42)
  - Night sweats [Unknown]
  - Blood alkaline phosphatase decreased [Unknown]
  - Blood creatine phosphokinase increased [Unknown]
  - Joint contracture [Unknown]
  - Synovial fluid white blood cells positive [Unknown]
  - White blood cell count decreased [Unknown]
  - Stomatitis [Unknown]
  - Hypertonic bladder [Unknown]
  - Arthralgia [Unknown]
  - Blood creatinine increased [Unknown]
  - Drug ineffective [Unknown]
  - Nail bed disorder [Unknown]
  - Gait disturbance [Unknown]
  - Urethral pain [Unknown]
  - Pruritus [Unknown]
  - Spinal osteoarthritis [Unknown]
  - Synovial disorder [Unknown]
  - Joint effusion [Unknown]
  - Low density lipoprotein increased [Unknown]
  - Rash erythematous [Unknown]
  - Weight decreased [Unknown]
  - Rash [Unknown]
  - Hair disorder [Unknown]
  - Sudden visual loss [Unknown]
  - Extremity contracture [Unknown]
  - Musculoskeletal pain [Unknown]
  - Fibromyalgia [Unknown]
  - Skin mass [Recovering/Resolving]
  - Pain in extremity [Unknown]
  - Dry skin [Unknown]
  - Depression [Unknown]
  - Mean platelet volume decreased [Unknown]
  - Lymphadenopathy [Unknown]
  - Uveitis [Unknown]
  - Musculoskeletal stiffness [Unknown]
  - Joint range of motion decreased [Unknown]
  - Posture abnormal [Unknown]
  - Chills [Unknown]
  - Pyrexia [Unknown]
  - Diarrhoea [Recovered/Resolved]
  - Erythema [Unknown]
  - Umbilical hernia [Unknown]

NARRATIVE: CASE EVENT DATE: 20130517
